FAERS Safety Report 25550828 (Version 1)
Quarter: 2025Q3

REPORT INFORMATION
  Report Type: Spontaneous
  Country: US (occurrence: US)
  Receive Date: 20250714
  Receipt Date: 20250714
  Transmission Date: 20251021
  Serious: No
  Sender: INTRA-CELLULAR THERAPIES
  Company Number: US-INTRA-CELLULAR THERAPIES, INC.-2025ICT01032

PATIENT
  Sex: Male

DRUGS (4)
  1. CAPLYTA [Suspect]
     Active Substance: LUMATEPERONE
     Indication: Bipolar disorder
  2. EFFEXOR [Suspect]
     Active Substance: VENLAFAXINE HYDROCHLORIDE
  3. DEPAKOTE [Suspect]
     Active Substance: DIVALPROEX SODIUM
  4. KLONOPIN [Suspect]
     Active Substance: CLONAZEPAM

REACTIONS (2)
  - Dysarthria [Unknown]
  - Dizziness [Unknown]
